FAERS Safety Report 20812475 (Version 2)
Quarter: 2022Q2

REPORT INFORMATION
  Report Type: Spontaneous
  Country: US (occurrence: US)
  Receive Date: 20220511
  Receipt Date: 20220524
  Transmission Date: 20220721
  Serious: Yes (Hospitalization, Other)
  Sender: FDA-Public Use
  Company Number: US-ALLERGAN-2214898US

PATIENT
  Sex: Male
  Weight: 99.336 kg

DRUGS (3)
  1. LUMIGAN [Suspect]
     Active Substance: BIMATOPROST
     Indication: Glaucoma
     Dosage: 2 GTT, QHS
     Route: 047
     Dates: start: 1997
  2. LOSARTAN [Concomitant]
     Active Substance: LOSARTAN
     Indication: Hypertension
  3. TIMOLOL [Concomitant]
     Active Substance: TIMOLOL

REACTIONS (5)
  - Cerebrovascular accident [Recovering/Resolving]
  - Coma [Recovered/Resolved]
  - Memory impairment [Recovering/Resolving]
  - Cardiac stress test abnormal [Unknown]
  - Headache [Recovered/Resolved]

NARRATIVE: CASE EVENT DATE: 20190401
